FAERS Safety Report 5390633-0 (Version None)
Quarter: 2007Q3

REPORT INFORMATION
  Report Type: 
  Country: None (occurrence: None)
  Receive Date: 20070712
  Receipt Date: 20070601
  Transmission Date: 20080115
  Serious: Yes (Other)
  Sender: FDA-Public Use
  Company Number: 6034150

PATIENT
  Age: 60 Year
  Sex: Male

DRUGS (1)
  1. ENALAPRIL MALEATE [Suspect]
     Indication: HYPERTENSION
     Dosage: 20 MG (20 MG, 1 IN 1 D)
     Route: 048

REACTIONS (7)
  - ANGIOEDEMA [None]
  - CARDIAC ARREST [None]
  - DYSPNOEA [None]
  - NERVOUS SYSTEM DISORDER [None]
  - OBSTRUCTIVE AIRWAYS DISORDER [None]
  - RESPIRATORY FAILURE [None]
  - SIMILAR REACTION ON PREVIOUS EXPOSURE TO DRUG [None]
